APPROVED DRUG PRODUCT: DAPIPRAZOLE HYDROCHLORIDE
Active Ingredient: DAPIPRAZOLE HYDROCHLORIDE
Strength: 0.5%
Dosage Form/Route: SOLUTION/DROPS;OPHTHALMIC
Application: A204902 | Product #001
Applicant: BARADAINA LLC
Approved: May 30, 2019 | RLD: No | RS: No | Type: DISCN